FAERS Safety Report 9201906 (Version 11)
Quarter: 2014Q1

REPORT INFORMATION
  Report Type: Spontaneous
  Country: US (occurrence: US)
  Receive Date: 20130401
  Receipt Date: 20140124
  Transmission Date: 20141002
  Serious: Yes (Life-Threatening, Hospitalization, Other)
  Sender: FDA-Public Use
  Company Number: US-ROCHE-1207790

PATIENT
  Age: 58 Year
  Sex: Female
  Weight: 73.55 kg

DRUGS (18)
  1. XOLAIR [Suspect]
     Indication: ASTHMA
     Route: 058
     Dates: start: 20110330, end: 201108
  2. XOLAIR [Suspect]
     Route: 065
     Dates: start: 20120130, end: 20121128
  3. XOLAIR [Suspect]
     Route: 058
     Dates: start: 20130322, end: 20130322
  4. ALBUTEROL SULFATE [Concomitant]
     Indication: ASTHMA
     Dosage: 3 ML INHALATION (0.083% NEBULISATION SOLUTION)
     Route: 065
     Dates: start: 20111112
  5. AMLODIPINE [Concomitant]
     Indication: BLOOD PRESSURE
     Route: 048
     Dates: start: 20121217
  6. IPRATROPIUM BROMIDE [Concomitant]
     Indication: ASTHMA
     Dosage: 0.02% SOLUTION
     Route: 065
     Dates: start: 20111112
  7. KETOCONAZOLE [Concomitant]
     Dosage: 2% CREAM, 1 APPLICATION TO AFFECTED AREA EXTERNALLY ONCE A DAY
     Route: 065
  8. NEXIUM [Concomitant]
     Route: 048
     Dates: start: 20130312
  9. NYSTATIN [Concomitant]
     Dosage: 100000 UNIT/ML SUSPENSION
     Route: 065
  10. PREDNISONE [Concomitant]
     Indication: ASTHMA
     Route: 048
     Dates: start: 20130728
  11. TRIAMCINOLONE ACETONIDE [Concomitant]
     Indication: RASH
     Route: 061
  12. SINGULAIR [Concomitant]
     Indication: ASTHMA
     Route: 048
     Dates: start: 20121217
  13. SYMBICORT [Concomitant]
     Indication: ASTHMA
     Dosage: 1 PUFF TWICE A DAY (160-4.5 MG)
     Route: 065
     Dates: start: 20121217
  14. FLONASE [Concomitant]
     Indication: HYPERSENSITIVITY
     Route: 045
     Dates: start: 20111011
  15. CLARITIN [Concomitant]
     Indication: HYPERSENSITIVITY
     Route: 048
     Dates: start: 20130213
  16. CITALOPRAM [Concomitant]
     Indication: ANXIETY
     Route: 048
     Dates: start: 201307
  17. GLIPIZIDE [Concomitant]
     Indication: DIABETES MELLITUS
     Route: 048
     Dates: start: 2013
  18. FLUTICASONE [Concomitant]
     Indication: HYPERSENSITIVITY
     Dosage: ONE SPRAY IN EACH NOSTRIL
     Route: 045

REACTIONS (7)
  - Asthma [Recovered/Resolved]
  - Dyspnoea [Unknown]
  - Anaphylactic reaction [Recovered/Resolved]
  - Rash [Not Recovered/Not Resolved]
  - Rash pruritic [Unknown]
  - Cough [Unknown]
  - Arthralgia [Unknown]
